FAERS Safety Report 23797337 (Version 1)
Quarter: 2024Q2

REPORT INFORMATION
  Report Type: Spontaneous
  Country: US (occurrence: US)
  Receive Date: 20240430
  Receipt Date: 20240430
  Transmission Date: 20240716
  Serious: Yes (Other)
  Sender: FDA-Public Use
  Company Number: US-862174955-ML2024-02668

PATIENT
  Age: 63 Year
  Sex: Female

DRUGS (2)
  1. VERAPAMIL [Suspect]
     Active Substance: VERAPAMIL HYDROCHLORIDE
     Indication: Hypertension
     Dosage: VERAPAMIL 240 MG EXTENDED-RELEASE TABLETS ONCE DAILY
  2. VERAPAMIL [Suspect]
     Active Substance: VERAPAMIL HYDROCHLORIDE
     Indication: Atrial fibrillation

REACTIONS (2)
  - Cardiac dysfunction [Unknown]
  - Toxicity to various agents [Unknown]
